FAERS Safety Report 6676727-8 (Version None)
Quarter: 2010Q2

REPORT INFORMATION
  Report Type: 
  Country: None (occurrence: None)
  Receive Date: 20100412
  Receipt Date: 20100331
  Transmission Date: 20101027
  Serious: Yes (Hospitalization)
  Sender: FDA-Public Use
  Company Number: JP-ROCHE-688024

PATIENT
  Sex: Male
  Weight: 49 kg

DRUGS (32)
  1. TOCILIZUMAB [Suspect]
     Indication: RHEUMATOID ARTHRITIS
     Route: 041
     Dates: start: 20080620, end: 20080620
  2. TOCILIZUMAB [Suspect]
     Route: 041
     Dates: start: 20080717, end: 20080717
  3. TOCILIZUMAB [Suspect]
     Route: 041
     Dates: start: 20080814, end: 20080814
  4. TOCILIZUMAB [Suspect]
     Route: 041
     Dates: start: 20080911, end: 20080911
  5. TOCILIZUMAB [Suspect]
     Route: 041
     Dates: start: 20081009, end: 20081009
  6. TOCILIZUMAB [Suspect]
     Route: 041
     Dates: start: 20081106, end: 20081106
  7. TOCILIZUMAB [Suspect]
     Route: 041
     Dates: start: 20081204, end: 20081204
  8. TOCILIZUMAB [Suspect]
     Route: 041
     Dates: start: 20090108, end: 20090108
  9. TOCILIZUMAB [Suspect]
     Route: 041
     Dates: start: 20090205, end: 20090205
  10. TOCILIZUMAB [Suspect]
     Route: 041
     Dates: start: 20090305, end: 20090305
  11. TOCILIZUMAB [Suspect]
     Route: 041
     Dates: start: 20090402, end: 20090402
  12. TOCILIZUMAB [Suspect]
     Route: 041
     Dates: start: 20090430, end: 20090430
  13. TOCILIZUMAB [Suspect]
     Route: 041
     Dates: start: 20090528, end: 20090528
  14. TOCILIZUMAB [Suspect]
     Route: 041
     Dates: start: 20090625, end: 20090625
  15. TOCILIZUMAB [Suspect]
     Route: 041
     Dates: start: 20090723, end: 20090723
  16. TOCILIZUMAB [Suspect]
     Route: 041
     Dates: start: 20090820, end: 20090820
  17. TOCILIZUMAB [Suspect]
     Route: 041
     Dates: start: 20090917, end: 20090917
  18. TOCILIZUMAB [Suspect]
     Route: 041
     Dates: start: 20091015, end: 20091015
  19. TOCILIZUMAB [Suspect]
     Route: 041
     Dates: start: 20091112, end: 20091112
  20. TOCILIZUMAB [Suspect]
     Route: 041
     Dates: start: 20091217, end: 20091217
  21. TOCILIZUMAB [Suspect]
     Route: 041
     Dates: start: 20100114, end: 20100114
  22. TOCILIZUMAB [Suspect]
     Route: 041
     Dates: start: 20100209, end: 20100209
  23. TOCILIZUMAB [Suspect]
     Route: 041
     Dates: start: 20100309
  24. SALAZOSULFAPYRIDINE [Concomitant]
     Dosage: FORM: ENTERIC COATING DRUG, DRUG NAME: AZULFIDINE - EN (SALAZOSULFAPYRIDINE)
     Route: 048
     Dates: start: 19991228
  25. METHOTREXATE [Concomitant]
     Route: 048
     Dates: start: 20030919
  26. BREDININ [Concomitant]
     Route: 048
     Dates: start: 20060720
  27. PREDONINE [Concomitant]
     Route: 048
     Dates: start: 20070104, end: 20080910
  28. PREDONINE [Concomitant]
     Route: 048
     Dates: start: 20080911, end: 20081008
  29. PREDONINE [Concomitant]
     Route: 048
     Dates: start: 20081009
  30. MOBIC [Concomitant]
     Route: 048
     Dates: start: 20070911
  31. CYTOTEC [Concomitant]
     Route: 048
     Dates: start: 20031115
  32. TAKEPRON [Concomitant]
     Route: 048
     Dates: start: 20040608

REACTIONS (3)
  - COLITIS ULCERATIVE [None]
  - ENTEROCOLITIS BACTERIAL [None]
  - PNEUMONIA [None]
